FAERS Safety Report 10059998 (Version 2)
Quarter: 2014Q2

REPORT INFORMATION
  Report Type: Report from Study
  Country: IE (occurrence: IE)
  Receive Date: 20140404
  Receipt Date: 20140414
  Transmission Date: 20141212
  Serious: No
  Sender: FDA-Public Use
  Company Number: IE-TEVA-471955ISR

PATIENT
  Age: 40 Year
  Sex: Female

DRUGS (3)
  1. COPAXONE [Suspect]
     Indication: RELAPSING-REMITTING MULTIPLE SCLEROSIS
     Dosage: 20 MILLIGRAM DAILY; TREATMENT STOPPED TEMP.
     Route: 058
     Dates: start: 20140324, end: 20140324
  2. NAUDICELLE [Concomitant]
  3. DESUNIN [Concomitant]
     Dosage: 2400 IU (INTERNATIONAL UNIT) DAILY;

REACTIONS (14)
  - Immediate post-injection reaction [Recovering/Resolving]
  - Malaise [Recovering/Resolving]
  - Nausea [Recovering/Resolving]
  - Presyncope [Recovering/Resolving]
  - Pulse abnormal [Recovering/Resolving]
  - Malaise [Recovering/Resolving]
  - Feeling cold [Recovering/Resolving]
  - Feeling abnormal [Recovering/Resolving]
  - VIIth nerve paralysis [Recovering/Resolving]
  - Speech disorder [Recovering/Resolving]
  - Abdominal pain upper [Recovering/Resolving]
  - Miosis [Recovered/Resolved]
  - Drooling [Recovering/Resolving]
  - Malaise [Not Recovered/Not Resolved]
